FAERS Safety Report 10039676 (Version 1)
Quarter: 2014Q1

REPORT INFORMATION
  Report Type: Spontaneous
  Country: CA (occurrence: CA)
  Receive Date: 20140326
  Receipt Date: 20140326
  Transmission Date: 20141002
  Serious: Yes (Other)
  Sender: FDA-Public Use
  Company Number: CA-BAXTER-2014BAX014847

PATIENT
  Age: 48 Year
  Sex: Female

DRUGS (16)
  1. DOPAMINE HYDROCHLORIDE AND 5% DEXTROSE INJECTION, USP [Suspect]
     Indication: OVERDOSE
     Route: 065
  2. DOPAMINE HYDROCHLORIDE AND 5% DEXTROSE INJECTION, USP [Suspect]
     Indication: OVERDOSE
  3. NALOXONE [Suspect]
     Indication: OVERDOSE
     Route: 065
  4. NALOXONE [Suspect]
     Indication: OVERDOSE
  5. GLUCAGON [Suspect]
     Indication: OVERDOSE
     Route: 065
  6. GLUCAGON [Suspect]
     Indication: OVERDOSE
  7. EPINEPHRINE [Suspect]
     Indication: OVERDOSE
     Route: 065
  8. EPINEPHRINE [Suspect]
     Indication: OVERDOSE
  9. VASOPRESSIN [Suspect]
     Indication: OVERDOSE
     Route: 065
  10. VASOPRESSIN [Suspect]
     Indication: OVERDOSE
  11. CLONIDINE [Concomitant]
     Indication: PRODUCT USED FOR UNKNOWN INDICATION
     Route: 065
  12. PROPRANOLOL [Concomitant]
     Indication: PRODUCT USED FOR UNKNOWN INDICATION
     Route: 065
  13. ESCITALOPRAM [Concomitant]
     Indication: PRODUCT USED FOR UNKNOWN INDICATION
     Route: 065
  14. LORAZEPAM [Concomitant]
     Indication: PRODUCT USED FOR UNKNOWN INDICATION
     Route: 065
  15. ATORVASTATIN [Concomitant]
     Indication: PRODUCT USED FOR UNKNOWN INDICATION
     Route: 065
  16. QUETIAPINE [Concomitant]
     Indication: PRODUCT USED FOR UNKNOWN INDICATION
     Route: 065

REACTIONS (1)
  - Drug ineffective [Unknown]
